FAERS Safety Report 25792584 (Version 2)
Quarter: 2025Q3

REPORT INFORMATION
  Report Type: Report from Study
  Country: CA (occurrence: CA)
  Receive Date: 20250911
  Receipt Date: 20250922
  Transmission Date: 20251021
  Serious: Yes (Other)
  Sender: TAKEDA
  Company Number: CA-TAKEDA-2025TUS019217

PATIENT
  Age: 74 Year
  Sex: Female

DRUGS (18)
  1. VEDOLIZUMAB [Suspect]
     Active Substance: VEDOLIZUMAB
     Indication: Colitis ulcerative
  2. VEDOLIZUMAB [Suspect]
     Active Substance: VEDOLIZUMAB
     Indication: Colitis ulcerative
     Dosage: 108 MILLIGRAM, Q2WEEKS
     Dates: start: 20250430
  3. VEDOLIZUMAB [Suspect]
     Active Substance: VEDOLIZUMAB
     Dosage: 108 MILLIGRAM, 1/WEEK
     Dates: start: 20250917
  4. TYLENOL [Concomitant]
     Active Substance: ACETAMINOPHEN
  5. PREDNISONE [Concomitant]
     Active Substance: PREDNISONE
  6. PENTASA [Concomitant]
     Active Substance: MESALAMINE
  7. PENTASA [Concomitant]
     Active Substance: MESALAMINE
     Dosage: 1 GRAM, QID
     Dates: start: 20241127
  8. BREO ELLIPTA [Concomitant]
     Active Substance: FLUTICASONE FUROATE\VILANTEROL TRIFENATATE
     Dosage: 62.5 MICROGRAM, QD
     Dates: start: 20241127
  9. OLMESARTAN [Concomitant]
     Active Substance: OLMESARTAN
     Dosage: 20 MILLIGRAM, QD
     Dates: start: 20241127
  10. Aa feno micro [Concomitant]
     Dosage: 200 MILLIGRAM, BID
     Dates: start: 20241127
  11. RABEPRAZOLE [Concomitant]
     Active Substance: RABEPRAZOLE
     Dosage: 20 MILLIGRAM, QD
     Dates: start: 20241127
  12. ZOLMITRIPTAN [Concomitant]
     Active Substance: ZOLMITRIPTAN
     Dosage: 2.5 MILLIGRAM, QD
     Dates: start: 20241016
  13. VITAMIN D [Concomitant]
     Active Substance: VITAMIN D NOS
     Dosage: 1000 INTERNATIONAL UNIT, QD
     Dates: start: 20231109
  14. Reactine [Concomitant]
  15. MINERALS\VITAMINS [Concomitant]
     Active Substance: MINERALS\VITAMINS
     Dosage: UNK UNK, QD
  16. TYLENOL ARTHRITIS PAIN [Concomitant]
     Active Substance: ACETAMINOPHEN
     Dosage: UNK, QD
  17. VOLTAREN [Concomitant]
     Active Substance: DICLOFENAC SODIUM
  18. ASPIRIN [Concomitant]
     Active Substance: ASPIRIN
     Dosage: 81 MILLIGRAM, QD
     Dates: start: 20250220

REACTIONS (3)
  - Haematochezia [Unknown]
  - Off label use [Unknown]
  - Frequent bowel movements [Unknown]

NARRATIVE: CASE EVENT DATE: 20250917
